FAERS Safety Report 19385493 (Version 2)
Quarter: 2021Q3

REPORT INFORMATION
  Report Type: Report from Study
  Country: None (occurrence: US)
  Receive Date: 20210608
  Receipt Date: 20210826
  Transmission Date: 20211014
  Serious: Yes (Other)
  Sender: FDA-Public Use
  Company Number: US-ABBVIE-21K-163-3884527-00

PATIENT
  Sex: Male

DRUGS (2)
  1. HUMIRA [Suspect]
     Active Substance: ADALIMUMAB
     Indication: PSORIATIC ARTHROPATHY
     Route: 058
     Dates: start: 20210426, end: 2021
  2. HUMIRA [Suspect]
     Active Substance: ADALIMUMAB
     Route: 058
     Dates: start: 2021

REACTIONS (12)
  - Gait disturbance [Not Recovered/Not Resolved]
  - Drug ineffective [Unknown]
  - Impaired self-care [Not Recovered/Not Resolved]
  - Inflammatory marker decreased [Unknown]
  - Joint range of motion decreased [Not Recovered/Not Resolved]
  - Weight bearing difficulty [Recovering/Resolving]
  - Injection site erythema [Unknown]
  - Injection site haemorrhage [Unknown]
  - Mobility decreased [Not Recovered/Not Resolved]
  - Back pain [Unknown]
  - Arthralgia [Not Recovered/Not Resolved]
  - Hernia [Unknown]

NARRATIVE: CASE EVENT DATE: 2021
